FAERS Safety Report 8370068 (Version 2)
Quarter: 2013Q1

REPORT INFORMATION
  Report Type: Report from Study
  Country: US (occurrence: US)
  Receive Date: 20120128
  Receipt Date: 20130129
  Transmission Date: 20140127
  Serious: Yes (Other)
  Sender: FDA-Public Use
  Company Number: US-ABBOTT-11P-163-0723071-00

PATIENT
  Age: 46 None
  Sex: Female
  Weight: 57.66 kg

DRUGS (13)
  1. HUMIRA 40 MG/ 0.8 ML PRE-FILLED SYRINGE [Suspect]
     Indication: CROHN^S DISEASE
     Route: 058
     Dates: start: 2009
  2. HUMIRA 40 MG/ 0.8 ML PRE-FILLED SYRINGE [Suspect]
     Dates: start: 20110207, end: 20110628
  3. HUMIRA 40 MG/ 0.8 ML PRE-FILLED SYRINGE [Suspect]
     Dates: start: 20110629
  4. HUMIRA 40 MG/0.8 ML PEN [Suspect]
     Indication: CROHN^S DISEASE
     Dates: end: 201204
  5. MULTIVITAMINS [Concomitant]
     Indication: VITAMIN SUPPLEMENTATION
  6. CALCIUM [Concomitant]
     Indication: PRODUCT USED FOR UNKNOWN INDICATION
  7. ALOE [Concomitant]
     Indication: DRUG THERAPY
  8. VITAMIN B12 [Concomitant]
     Indication: SUPPLEMENTATION THERAPY
  9. CALTRATE [Concomitant]
     Indication: MINERAL SUPPLEMENTATION
  10. LOMOTIL [Concomitant]
     Indication: CROHN^S DISEASE
  11. VITAMIN C [Concomitant]
     Indication: PRODUCT USED FOR UNKNOWN INDICATION
  12. VITAMIN D [Concomitant]
     Indication: PRODUCT USED FOR UNKNOWN INDICATION
  13. IRON [Concomitant]
     Indication: PRODUCT USED FOR UNKNOWN INDICATION
     Dosage: 1 PILL EVERY OTHER DAY

REACTIONS (62)
  - Anorectal operation [Unknown]
  - Fatigue [Not Recovered/Not Resolved]
  - Asthenia [Unknown]
  - Tremor [Unknown]
  - Arthralgia [Unknown]
  - Balance disorder [Not Recovered/Not Resolved]
  - Dizziness [Not Recovered/Not Resolved]
  - Psychiatric symptom [Unknown]
  - Fatigue [Not Recovered/Not Resolved]
  - Headache [Not Recovered/Not Resolved]
  - Blood iron decreased [Not Recovered/Not Resolved]
  - Mood swings [Not Recovered/Not Resolved]
  - Nodule [Recovered/Resolved with Sequelae]
  - Skin discolouration [Recovering/Resolving]
  - Ocular hyperaemia [Unknown]
  - Eye pain [Unknown]
  - Dysstasia [Unknown]
  - Gait disturbance [Unknown]
  - Loose tooth [Unknown]
  - Oral pain [Unknown]
  - Menstruation irregular [Unknown]
  - Abdominal pain upper [Unknown]
  - Muscle twitching [Unknown]
  - Pain in extremity [Unknown]
  - Female genital tract fistula [Unknown]
  - Muscle spasms [Not Recovered/Not Resolved]
  - Wound [Not Recovered/Not Resolved]
  - Wound [Not Recovered/Not Resolved]
  - Heat exhaustion [Not Recovered/Not Resolved]
  - Arthralgia [Not Recovered/Not Resolved]
  - Fatigue [Not Recovered/Not Resolved]
  - Drug effect increased [Not Recovered/Not Resolved]
  - Arthralgia [Not Recovered/Not Resolved]
  - Dizziness [Not Recovered/Not Resolved]
  - Asthenia [Not Recovered/Not Resolved]
  - Arthralgia [Unknown]
  - Tremor [Unknown]
  - Stomatitis [Recovered/Resolved]
  - Skin lesion [Recovered/Resolved]
  - Dizziness [Not Recovered/Not Resolved]
  - Fatigue [Not Recovered/Not Resolved]
  - Headache [Unknown]
  - Haemorrhoids [Unknown]
  - Mood altered [Unknown]
  - Personality change [Unknown]
  - Gastrooesophageal reflux disease [Not Recovered/Not Resolved]
  - Acquired oesophageal web [Not Recovered/Not Resolved]
  - Haemoglobin decreased [Unknown]
  - Blood iron decreased [Unknown]
  - C-reactive protein increased [Unknown]
  - Oesophageal stenosis [Not Recovered/Not Resolved]
  - Neutrophilic panniculitis [Unknown]
  - Dermatitis [Unknown]
  - Leukocytoclastic vasculitis [Unknown]
  - Balance disorder [Not Recovered/Not Resolved]
  - Incorrect drug administration duration [Not Recovered/Not Resolved]
  - Loss of consciousness [Not Recovered/Not Resolved]
  - Decreased appetite [Not Recovered/Not Resolved]
  - Solar dermatitis [Not Recovered/Not Resolved]
  - Stomatitis [Not Recovered/Not Resolved]
  - Diarrhoea haemorrhagic [Not Recovered/Not Resolved]
  - Dysuria [Not Recovered/Not Resolved]
